FAERS Safety Report 22321556 (Version 1)
Quarter: 2023Q2

REPORT INFORMATION
  Report Type: Spontaneous
  Country: None (occurrence: A1)
  Receive Date: 20230515
  Receipt Date: 20230515
  Transmission Date: 20230721
  Serious: No
  Sender: FDA-Public Use
  Company Number: A1-Armstrong Pharmaceuticals, Inc.-2141485

PATIENT
  Age: 74 Year
  Sex: Female
  Weight: 54.545 kg

DRUGS (2)
  1. PRIMATENE MIST [Suspect]
     Active Substance: EPINEPHRINE
     Indication: Bronchitis
     Route: 055
  2. High blood pressure medication (unspecified) [Concomitant]

REACTIONS (1)
  - Drug ineffective [Recovered/Resolved]

NARRATIVE: CASE EVENT DATE: 20221201
